FAERS Safety Report 5136681-7 (Version None)
Quarter: 2006Q4

REPORT INFORMATION
  Report Type: 
  Country: None (occurrence: None)
  Receive Date: 20061027
  Receipt Date: 20050719
  Transmission Date: 20070319
  Serious: Yes (Other)
  Sender: FDA-Public Use
  Company Number: US-MERCK-0507USA03149

PATIENT
  Age: 30 Year
  Sex: Male

DRUGS (2)
  1. HYZAAR [Suspect]
     Route: 048
     Dates: start: 20050701, end: 20050719
  2. COZAAR [Suspect]
     Route: 048
     Dates: end: 20050701

REACTIONS (2)
  - OESOPHAGEAL OEDEMA [None]
  - SWOLLEN TONGUE [None]
